FAERS Safety Report 9014368 (Version 3)
Quarter: 2013Q2

REPORT INFORMATION
  Report Type: Spontaneous
  Country: US (occurrence: US)
  Receive Date: 20130115
  Receipt Date: 20130506
  Transmission Date: 20140414
  Serious: No
  Sender: FDA-Public Use
  Company Number: US-PFIZER INC-2013016953

PATIENT
  Age: 82 Year
  Sex: Male
  Weight: 64.85 kg

DRUGS (5)
  1. LYRICA [Suspect]
     Indication: DIABETIC NEUROPATHY
     Dosage: 75 MG, 1X/DAY
     Route: 048
     Dates: start: 20060421
  2. JANUVIA [Concomitant]
     Indication: DIABETES MELLITUS
     Dosage: 50 MG, 1X/DAY
  3. METOPROLOL [Concomitant]
     Indication: CARDIAC DISORDER
     Dosage: 50 MG, 1X/DAY
  4. CRESTOR [Concomitant]
     Dosage: 10 MG, 1X/DAY
  5. PRILOSEC [Concomitant]
     Indication: ULCER
     Dosage: 20 MG, 2X/DAY

REACTIONS (3)
  - Thrombocytopenia [Unknown]
  - Pain [Recovered/Resolved]
  - Insomnia [Recovered/Resolved]
